FAERS Safety Report 6300360-0 (Version None)
Quarter: 2009Q3

REPORT INFORMATION
  Report Type: 
  Country: None (occurrence: None)
  Receive Date: 20090805
  Receipt Date: 20090723
  Transmission Date: 20100115
  Serious: Yes (Other)
  Sender: FDA-Public Use
  Company Number: MC200900259

PATIENT

DRUGS (2)
  1. ANGIOMAX [Suspect]
     Indication: PERCUTANEOUS CORONARY INTERVENTION
     Dates: start: 20090501
  2. ANTIBIOTICS [Concomitant]

REACTIONS (1)
  - CORONARY ARTERY OCCLUSION [None]
